FAERS Safety Report 6882397-6 (Version None)
Quarter: 2010Q3

REPORT INFORMATION
  Report Type: 
  Country: None (occurrence: None)
  Receive Date: 20100729
  Receipt Date: 20100722
  Transmission Date: 20110219
  Serious: Yes (Death, Hospitalization, Other)
  Sender: FDA-Public Use
  Company Number: US-JNJCH-001-0184-M0000030

PATIENT
  Sex: Male
  Weight: 47.6 kg

DRUGS (3)
  1. BENADRYL [Suspect]
     Indication: SEDATION
     Dosage: TEXT:UNK
     Route: 048
  2. HALDOL [Suspect]
     Indication: SEDATION
     Dosage: DAILY DOSE:3MG-FREQ:UNK
     Route: 065
  3. ZOLOFT [Suspect]
     Indication: ILL-DEFINED DISORDER
     Dosage: TEXT:UNK
     Route: 065

REACTIONS (5)
  - ASPIRATION [None]
  - DEPRESSED LEVEL OF CONSCIOUSNESS [None]
  - DRUG ADMINISTRATION ERROR [None]
  - OVERDOSE [None]
  - TARDIVE DYSKINESIA [None]
